FAERS Safety Report 11273496 (Version 1)
Quarter: 2015Q2

REPORT INFORMATION
  Report Type: Spontaneous
  Country: US (occurrence: None)
  Receive Date: 20150625
  Receipt Date: 20150625
  Transmission Date: 20150821
  Serious: No
  Sender: FDA-Public Use
  Company Number: A-NJ2015-115038

PATIENT
  Age: 61 Year
  Sex: Female

DRUGS (13)
  1. CIPROFLOXACIN (CIPROFLOXACIN LACTATE) [Concomitant]
  2. PLAQUENIL [Concomitant]
     Active Substance: HYDROXYCHLOROQUINE SULFATE
  3. ONDANSETRON. [Concomitant]
     Active Substance: ONDANSETRON
  4. CHERATUSSIN (AMMONIUM CHLORIDE, DEXTROMETHORPHAN HYDROBROMIDE, SODIUM CITRATE) [Concomitant]
  5. OPSUMIT [Suspect]
     Active Substance: MACITENTAN
     Indication: CONNECTIVE TISSUE DISORDER
     Route: 048
  6. AMOXICILLIN. [Concomitant]
     Active Substance: AMOXICILLIN
  7. TAMIFLU [Concomitant]
     Active Substance: OSELTAMIVIR PHOSPHATE
  8. LEVOTHYROXINE (LEVOTHYROXINE SODIUM) [Concomitant]
  9. PREDNISONE (PREDNISONE ACETATE) [Concomitant]
  10. HYDROCODONE BITARTRATE AND ACETAMINOPHEN [Concomitant]
     Active Substance: ACETAMINOPHEN\HYDROCODONE BITARTRATE
  11. LIDOCAINE (LIDOCAINE HYDROCHLORIDE) [Concomitant]
     Active Substance: LIDOCAINE
  12. ALBUTEROL (SALBUTAMOL SULFATE) [Concomitant]
  13. FUROSEMIDE (FUROSEMIDE SODIUM) [Concomitant]

REACTIONS (1)
  - Dysphagia [None]
